FAERS Safety Report 23992630 (Version 1)
Quarter: 2024Q2

REPORT INFORMATION
  Report Type: Spontaneous
  Country: US (occurrence: US)
  Receive Date: 20240620
  Receipt Date: 20240620
  Transmission Date: 20240715
  Serious: No
  Sender: FDA-Public Use
  Company Number: US-AUROBINDO-AUR-APL-2024-002970

PATIENT
  Sex: Male

DRUGS (1)
  1. CLINDAMYCIN PALMITATE HYDROCHLORIDE [Suspect]
     Active Substance: CLINDAMYCIN PALMITATE HYDROCHLORIDE
     Indication: Infection
     Dosage: 30 MILLIGRAM (3 DOSES)
     Route: 065

REACTIONS (3)
  - Product odour abnormal [Unknown]
  - Product colour issue [Unknown]
  - Product taste abnormal [Unknown]
